FAERS Safety Report 6064818-4 (Version None)
Quarter: 2009Q1

REPORT INFORMATION
  Report Type: 
  Country: None (occurrence: None)
  Receive Date: 20090204
  Receipt Date: 20090123
  Transmission Date: 20090719
  Serious: Yes (Other)
  Sender: FDA-Public Use
  Company Number: US-ROCHE-506682

PATIENT
  Sex: Female

DRUGS (2)
  1. PEGASYS [Suspect]
     Indication: HEPATITIS C
     Dosage: FORM: PREFILLED SYRINGE
     Route: 065
     Dates: start: 20070323, end: 20070504
  2. COPEGUS [Suspect]
     Indication: HEPATITIS C
     Dosage: FORM REPORTED AS ^PILLS^, DOSE: DIVIDED DOSES
     Route: 065
     Dates: start: 20070323, end: 20070504

REACTIONS (14)
  - ABDOMINAL RIGIDITY [None]
  - BACK PAIN [None]
  - CHILLS [None]
  - FATIGUE [None]
  - GENITAL HAEMORRHAGE [None]
  - HEPATITIS C [None]
  - HYPERHIDROSIS [None]
  - HYSTERECTOMY [None]
  - OVARIAN CYST [None]
  - PAIN [None]
  - PRURITUS [None]
  - UTERINE DILATION AND CURETTAGE [None]
  - UTERINE NEOPLASM [None]
  - WEIGHT INCREASED [None]
